FAERS Safety Report 7118350-7 (Version None)
Quarter: 2010Q4

REPORT INFORMATION
  Report Type: 
  Country: None (occurrence: None)
  Receive Date: 20101123
  Receipt Date: 20101119
  Transmission Date: 20110411
  Serious: Yes (Other)
  Sender: FDA-Public Use
  Company Number: PHHY2010JP78803

PATIENT
  Age: 81 Year
  Sex: Male

DRUGS (1)
  1. COMTAN [Suspect]
     Route: 048

REACTIONS (1)
  - GASTRIC FISTULA [None]
